FAERS Safety Report 10078897 (Version 2)
Quarter: 2014Q2

REPORT INFORMATION
  Report Type: Spontaneous
  Country: JP (occurrence: None)
  Receive Date: 20140411
  Receipt Date: 20140423
  Transmission Date: 20141212
  Serious: Yes (Congenital Anomaly, Other)
  Sender: FDA-Public Use
  Company Number: 2014041753

PATIENT
  Age: 39 Year
  Sex: Female

DRUGS (2)
  1. DESMOPRESSIN ACETATE [Suspect]
     Indication: DIABETES INSIPIDUS
     Route: 045
  2. INSULIN (INSULIN) [Concomitant]

REACTIONS (4)
  - Maternal exposure during pregnancy [None]
  - Oligohydramnios [None]
  - Premature delivery [None]
  - Caesarean section [None]
